FAERS Safety Report 9455045 (Version 1)
Quarter: 2013Q3

REPORT INFORMATION
  Report Type: Spontaneous
  Country: CA (occurrence: CA)
  Receive Date: 20130813
  Receipt Date: 20130813
  Transmission Date: 20140515
  Serious: Yes (Hospitalization)
  Sender: FDA-Public Use
  Company Number: CA-AMGEN-CANSP2013055572

PATIENT
  Age: 63 Year
  Sex: Female

DRUGS (2)
  1. ENBREL [Suspect]
     Indication: RHEUMATOID ARTHRITIS
     Dosage: 50 MG, UNK
     Route: 065
     Dates: start: 20110215
  2. SULFASALAZINE [Concomitant]
     Dosage: UNK

REACTIONS (3)
  - Renal disorder [Not Recovered/Not Resolved]
  - Bladder disorder [Not Recovered/Not Resolved]
  - Eye disorder [Not Recovered/Not Resolved]
